FAERS Safety Report 5300254-3 (Version None)
Quarter: 2007Q2

REPORT INFORMATION
  Report Type: 
  Country: None (occurrence: None)
  Receive Date: 20070411
  Receipt Date: 20070330
  Transmission Date: 20071010
  Serious: Yes (Hospitalization)
  Sender: FDA-Public Use
  Company Number: TCI2007A01482

PATIENT
  Age: 56 Year
  Sex: Male

DRUGS (4)
  1. LANSAP 400 (LANSOPRAZOLE, CLARITHROMYCIN, AMOXICILLIN) [Suspect]
     Indication: GASTRIC ULCER
     Dosage: 1 CARD (0.5 CARD, 2 IN 1 D) PER ORAL
     Route: 048
     Dates: start: 20061019, end: 20061025
  2. LANSAP 400 (LANSOPRAZOLE, CLARITHROMYCIN, AMOXICILLIN) [Suspect]
     Indication: HELICOBACTER INFECTION
     Dosage: 1 CARD (0.5 CARD, 2 IN 1 D) PER ORAL
     Route: 048
     Dates: start: 20061019, end: 20061025
  3. LANSOPRAZOLE [Suspect]
     Indication: GASTROINTESTINAL DISORDER
     Dosage: 15 MG (15 MG, 1 IN 1 D) PER ORAL
     Route: 048
     Dates: start: 20061026, end: 20061211
  4. LANSOPRAZOLE [Suspect]
     Indication: GASTROINTESTINAL DISORDER
     Dosage: 15 MG (15 MG, 1 IN 1 D) PER ORAL
     Route: 048
     Dates: start: 20070216

REACTIONS (4)
  - ENTEROCOLITIS [None]
  - GASTRODUODENITIS [None]
  - NASOPHARYNGITIS [None]
  - PROTEIN TOTAL DECREASED [None]
